FAERS Safety Report 4411749-9 (Version None)
Quarter: 2004Q3

REPORT INFORMATION
  Report Type: 
  Country: None (occurrence: None)
  Receive Date: 20040729
  Receipt Date: 20040729
  Transmission Date: 20050211
  Serious: Yes (Hospitalization)
  Sender: FDA-Public Use
  Company Number: None

PATIENT
  Age: 57 Year
  Sex: Male
  Weight: 78.4723 kg

DRUGS (8)
  1. DILANTIN [Suspect]
     Indication: GRAND MAL CONVULSION
     Dosage: 300 MG QAM ORAL
     Route: 048
     Dates: start: 20040627, end: 20040720
  2. ALBUTEROL [Concomitant]
  3. MAGNESIUM OXIDE [Concomitant]
  4. METHYLCELLULOSE [Concomitant]
  5. FLUNISOLIDE 250MCG/MENTHOL 100D [Concomitant]
  6. HYDROCHLOROTHIAZIDE [Concomitant]
  7. LUBRICATING OPH OINT [Concomitant]
  8. DM10/GUAIFENESIN [Concomitant]

REACTIONS (13)
  - AMNESIA [None]
  - ASTHENIA [None]
  - BALANCE DISORDER [None]
  - COORDINATION ABNORMAL [None]
  - CRYING [None]
  - DIFFICULTY IN WALKING [None]
  - DISORIENTATION [None]
  - DRUG TOXICITY [None]
  - DYSARTHRIA [None]
  - DYSSTASIA [None]
  - FALL [None]
  - FATIGUE [None]
  - URINARY INCONTINENCE [None]
